FAERS Safety Report 21211369 (Version 1)
Quarter: 2022Q3

REPORT INFORMATION
  Report Type: Spontaneous
  Country: US (occurrence: None)
  Receive Date: 20220813
  Receipt Date: 20220813
  Transmission Date: 20221026
  Serious: Yes (Life-Threatening)
  Sender: FDA-Public Use
  Company Number: None

PATIENT
  Age: 64 Year
  Sex: Female
  Weight: 81.4 kg

DRUGS (1)
  1. LAPINE T-LYMPHOCYTE IMMUNE GLOBULIN [Suspect]
     Active Substance: LAPINE T-LYMPHOCYTE IMMUNE GLOBULIN
     Indication: Lung transplant
     Dosage: OTHER FREQUENCY : ONCE;?
     Route: 041
     Dates: start: 20220715, end: 20220715

REACTIONS (7)
  - Serum sickness [None]
  - Hypertension [None]
  - Infusion related reaction [None]
  - Pyrexia [None]
  - Hypotension [None]
  - Renal tubular necrosis [None]
  - Device dependence [None]

NARRATIVE: CASE EVENT DATE: 20220715
